FAERS Safety Report 24970626 (Version 6)
Quarter: 2025Q2

REPORT INFORMATION
  Report Type: Report from Study
  Country: MA (occurrence: MA)
  Receive Date: 20250214
  Receipt Date: 20250422
  Transmission Date: 20250716
  Serious: Yes (Hospitalization, Other)
  Sender: NOVARTIS
  Company Number: MA-002147023-NVSC2024MA229587

PATIENT
  Age: 39 Year
  Sex: Female

DRUGS (4)
  1. COSENTYX [Suspect]
     Active Substance: SECUKINUMAB
     Indication: Ankylosing spondylitis
     Route: 058
     Dates: start: 20240319
  2. COSENTYX [Suspect]
     Active Substance: SECUKINUMAB
     Route: 058
  3. COSENTYX [Suspect]
     Active Substance: SECUKINUMAB
     Dosage: 2 DOSAGE FORM, QMO (300 MG)
     Route: 065
     Dates: end: 20240917
  4. ASPIRIN LYSINE [Concomitant]
     Active Substance: ASPIRIN LYSINE
     Indication: Poor peripheral circulation
     Route: 065

REACTIONS (16)
  - Psoriatic arthropathy [Unknown]
  - Illness [Unknown]
  - Ankylosing spondylitis [Unknown]
  - Pneumonia [Unknown]
  - Joint effusion [Not Recovered/Not Resolved]
  - Peripheral swelling [Unknown]
  - Pain in extremity [Unknown]
  - Psoriasis [Unknown]
  - Blood potassium increased [Unknown]
  - Oropharyngeal pain [Unknown]
  - Glossodynia [Unknown]
  - Arthralgia [Unknown]
  - Dyspnoea [Unknown]
  - Abdominal pain upper [Unknown]
  - Bacterial infection [Unknown]
  - Infection [Unknown]
